FAERS Safety Report 7596877-1 (Version None)
Quarter: 2011Q3

REPORT INFORMATION
  Report Type: 
  Country: None (occurrence: None)
  Receive Date: 20110708
  Receipt Date: 20110705
  Transmission Date: 20111222
  Serious: Yes (Other)
  Sender: FDA-Public Use
  Company Number: FR-PFIZER INC-2011149653

PATIENT
  Age: 55 Year
  Sex: Female

DRUGS (1)
  1. LYRICA [Suspect]
     Dosage: 75 MG, 2X/DAY
     Dates: start: 20110704, end: 20110704

REACTIONS (8)
  - TRISMUS [None]
  - HEADACHE [None]
  - ASTHENIA [None]
  - VERTIGO [None]
  - PARAESTHESIA [None]
  - DAYDREAMING [None]
  - DYSPNOEA [None]
  - MIGRAINE [None]
